FAERS Safety Report 19263215 (Version 2)
Quarter: 2021Q2

REPORT INFORMATION
  Report Type: Spontaneous
  Country: JP (occurrence: JP)
  Receive Date: 20210517
  Receipt Date: 20210611
  Transmission Date: 20210717
  Serious: Yes (Hospitalization, Other)
  Sender: FDA-Public Use
  Company Number: JP-ORGANON-O2105JPN000076J

PATIENT
  Age: 81 Year
  Sex: Female
  Weight: 50.9 kg

DRUGS (19)
  1. OMEPRAL [OMEPRAZOLE] [Concomitant]
     Active Substance: OMEPRAZOLE
     Dosage: 10 MILLIGRAM
     Route: 065
  2. ONGLYZA [SAXAGLIPTIN HYDROCHLORIDE] [Concomitant]
     Dosage: 5 MILLIGRAM
     Route: 065
  3. SULPIRIDE [Concomitant]
     Active Substance: SULPIRIDE
     Dosage: 50 MILLIGRAM
     Route: 065
  4. CILNIDIPINE [Concomitant]
     Active Substance: CILNIDIPINE
     Dosage: 10 MILLIGRAM
     Route: 065
  5. ASVERIN (TIPEPIDINE HIBENZATE) [Concomitant]
     Active Substance: TIPEPIDINE HIBENZATE
     Dosage: 0.5 PERCENT
     Route: 065
  6. AZELASTINE HYDROCHLORIDE. [Concomitant]
     Active Substance: AZELASTINE HYDROCHLORIDE
     Dosage: 1 MILLIGRAM
     Route: 065
  7. CLOPIDOGREL [CLOPIDOGREL BISULFATE] [Concomitant]
     Active Substance: CLOPIDOGREL BISULFATE
     Dosage: 75 MILLIGRAM
     Route: 065
  8. ASTOMIN [DIMEMORFAN PHOSPHATE] [Concomitant]
     Active Substance: DIMEMORFAN PHOSPHATE
     Dosage: 10 MILLIGRAM
     Route: 065
  9. ATOZET COMBINATION TABLETS LD [Suspect]
     Active Substance: ATORVASTATIN CALCIUM\EZETIMIBE
     Indication: HYPERLIPIDAEMIA
     Dosage: 1 DOSAGE FORM, QD
     Route: 048
     Dates: end: 20191128
  10. VASOLAN [VERAPAMIL HYDROCHLORIDE] [Concomitant]
     Active Substance: VERAPAMIL HYDROCHLORIDE
     Dosage: 40 MILLIGRAM
     Route: 065
  11. MENDON [CLORAZEPATE DIPOTASSIUM] [Concomitant]
     Dosage: 7.5 MILLIGRAM
     Route: 065
  12. SPIRONOLACTONE. [Concomitant]
     Active Substance: SPIRONOLACTONE
     Dosage: 50 MILLIGRAM
     Route: 065
  13. MAGNESIUM OXIDE. [Concomitant]
     Active Substance: MAGNESIUM OXIDE
     Dosage: 500 MILLIGRAM
     Route: 065
  14. ALOSENN [SENNOSIDE A+B] [Concomitant]
     Dosage: 1.5 MILLIGRAM
     Route: 065
  15. OPISEZOL?CODEINE [Concomitant]
     Active Substance: HERBALS
     Dosage: UNK
     Route: 065
  16. HEMONASE [Concomitant]
     Dosage: UNK
     Route: 048
  17. CARBOCISTEINE [Concomitant]
     Active Substance: CARBOCYSTEINE
     Dosage: 500 MILLIGRAM
  18. AMINOPHYLLINE HYDRATE [Suspect]
     Active Substance: AMINOPHYLLINE
     Indication: ASTHMA
     Dosage: 200 MILLIGRAM
     Route: 048
     Dates: start: 20191120, end: 20191125
  19. PREDNISOLONE. [Concomitant]
     Active Substance: PREDNISOLONE
     Dosage: 5 MILLIGRAM
     Route: 065

REACTIONS (2)
  - Acute kidney injury [Recovering/Resolving]
  - Rhabdomyolysis [Recovering/Resolving]

NARRATIVE: CASE EVENT DATE: 20191127
